FAERS Safety Report 14230530 (Version 1)
Quarter: 2017Q4

REPORT INFORMATION
  Report Type: Spontaneous
  Country: US (occurrence: US)
  Receive Date: 20171128
  Receipt Date: 20171128
  Transmission Date: 20180321
  Serious: No
  Sender: FDA-Public Use
  Company Number: US-ANTARES PHARMA, INC.-2017-LIT-ME-0377

PATIENT
  Age: 21 Year
  Sex: Female

DRUGS (2)
  1. METHOTREXATE. [Suspect]
     Active Substance: METHOTREXATE
     Indication: OFF LABEL USE
     Dosage: 80 MG, UNK
     Route: 030
  2. METHOTREXATE. [Suspect]
     Active Substance: METHOTREXATE
     Indication: ECTOPIC PREGNANCY

REACTIONS (4)
  - Nausea [Unknown]
  - Off label use [Unknown]
  - Dyspnoea [Unknown]
  - Chest pain [Unknown]
